FAERS Safety Report 9514732 (Version 1)
Quarter: 2013Q1

REPORT INFORMATION
  Report Type: Spontaneous
  Country: US (occurrence: None)
  Receive Date: 20130305
  Receipt Date: 20130305
  Transmission Date: 20140127
  Serious: Yes (Hospitalization)
  Sender: FDA-Public Use
  Company Number: 163-21880-12112021

PATIENT
  Age: 75 Year
  Sex: Female

DRUGS (7)
  1. REVLIMID [Suspect]
     Indication: PLASMA CELL MYELOMA
     Dosage: 25 MG, 1 IN 2 D, PO
     Route: 048
     Dates: start: 20101111
  2. AMBIEN (ZOLPIDEM TARTRATE) (TABLETS) [Concomitant]
  3. OXYCONTIN (OXYCODONE HYDROCHLORIDE) (TABLETS) [Concomitant]
  4. VOLTAREN (DICLOFENAC SODIUM) (TABLETS) [Concomitant]
  5. AUGMENTIN (CLAVULIN) (TABLETS) [Concomitant]
  6. ATENOLOL (ATENOLOL) (TABLETS) [Concomitant]
  7. FRAGMIN (HEPARIN-FRACTION, SODIUM SALT) (UNKNOWN) [Concomitant]

REACTIONS (1)
  - Pulmonary embolism [None]
